FAERS Safety Report 18490844 (Version 1)
Quarter: 2020Q4

REPORT INFORMATION
  Report Type: Report from Study
  Country: US (occurrence: US)
  Receive Date: 20201111
  Receipt Date: 20201111
  Transmission Date: 20210114
  Serious: No
  Sender: FDA-Public Use
  Company Number: US-INCYTE CORPORATION-2020IN009631

PATIENT

DRUGS (1)
  1. JAKAFI [Suspect]
     Active Substance: RUXOLITINIB
     Indication: POLYCYTHAEMIA VERA
     Dosage: 17 MILLIGRAM, QD
     Route: 065

REACTIONS (4)
  - White blood cell count abnormal [Unknown]
  - Wrong technique in product usage process [Unknown]
  - Haematocrit abnormal [Unknown]
  - Platelet count abnormal [Unknown]
